FAERS Safety Report 12631250 (Version 2)
Quarter: 2016Q3

REPORT INFORMATION
  Report Type: Spontaneous
  Country: US (occurrence: US)
  Receive Date: 20160808
  Receipt Date: 20160808
  Transmission Date: 20161109
  Serious: No
  Sender: FDA-Public Use
  Company Number: US-BEH-2015053036

PATIENT
  Sex: Female

DRUGS (1)
  1. HIZENTRA [Suspect]
     Active Substance: HUMAN IMMUNOGLOBULIN G
     Indication: PRODUCT USED FOR UNKNOWN INDICATION

REACTIONS (13)
  - Erythema [Unknown]
  - Weight decreased [Unknown]
  - Skin hypertrophy [Unknown]
  - Urinary tract infection [Unknown]
  - Contusion [Unknown]
  - Unevaluable event [Unknown]
  - Bladder dysfunction [Unknown]
  - Malaise [Unknown]
  - Headache [Unknown]
  - Memory impairment [Unknown]
  - Fungal infection [Unknown]
  - Hysterectomy [Unknown]
  - Tooth infection [Unknown]
